FAERS Safety Report 22314844 (Version 1)
Quarter: 2023Q2

REPORT INFORMATION
  Report Type: Spontaneous
  Country: US (occurrence: US)
  Receive Date: 20230512
  Receipt Date: 20230512
  Transmission Date: 20230722
  Serious: Yes (Other)
  Sender: FDA-Public Use
  Company Number: US-ALXN-A202306174

PATIENT
  Sex: Female

DRUGS (2)
  1. STRENSIQ [Suspect]
     Active Substance: ASFOTASE ALFA
     Indication: Hypophosphatasia
     Dosage: UNK
     Route: 058
     Dates: start: 201910
  2. STRENSIQ [Suspect]
     Active Substance: ASFOTASE ALFA
     Dosage: UNK
     Route: 065

REACTIONS (20)
  - Pyoderma gangrenosum [Recovered/Resolved]
  - Bile duct stone [Unknown]
  - Polycystic liver disease [Unknown]
  - Blood testosterone increased [Unknown]
  - Molluscum contagiosum [Unknown]
  - Skin ulcer [Recovered/Resolved]
  - Pruritus [Recovered/Resolved]
  - Pain [Unknown]
  - Obsessive-compulsive disorder [Unknown]
  - Obsessive-compulsive personality disorder [Unknown]
  - Depression [Unknown]
  - Skin abrasion [Unknown]
  - Anxiety [Unknown]
  - Rosacea [Unknown]
  - Facial pain [Unknown]
  - Ocular rosacea [Unknown]
  - Ocular hyperaemia [Unknown]
  - Eye irritation [Unknown]
  - Gastrooesophageal reflux disease [Not Recovered/Not Resolved]
  - Vomiting [Not Recovered/Not Resolved]

NARRATIVE: CASE EVENT DATE: 20190101
